FAERS Safety Report 13504052 (Version 1)
Quarter: 2017Q2

REPORT INFORMATION
  Report Type: Spontaneous
  Country: US (occurrence: US)
  Receive Date: 20170502
  Receipt Date: 20170502
  Transmission Date: 20170830
  Serious: Yes (Other)
  Sender: FDA-Public Use
  Company Number: None

PATIENT
  Age: 61 Year
  Sex: Male

DRUGS (4)
  1. DIVALPROEX ER [Concomitant]
     Active Substance: DIVALPROEX SODIUM
  2. FINASTERIDE TAB [Concomitant]
  3. LAMOTRIGINE EXTENDED RELEASE [Suspect]
     Active Substance: LAMOTRIGINE
     Indication: EPILEPSY
     Route: 048
     Dates: start: 20170423, end: 20170501
  4. SIMVASTATIN. [Concomitant]
     Active Substance: SIMVASTATIN

REACTIONS (4)
  - Product quality issue [None]
  - Polydipsia [None]
  - Nausea [None]
  - Ataxia [None]

NARRATIVE: CASE EVENT DATE: 20170502
